FAERS Safety Report 8131233-9 (Version None)
Quarter: 2012Q1

REPORT INFORMATION
  Report Type: 
  Country: None (occurrence: None)
  Receive Date: 20120207
  Receipt Date: 20120203
  Transmission Date: 20120608
  Serious: Yes (Other)
  Sender: FDA-Public Use
  Company Number: USA/USA/12/0022914

PATIENT
  Age: 57 Year
  Sex: Female
  Weight: 53.5244 kg

DRUGS (3)
  1. SINEMET [Suspect]
     Indication: PARKINSON'S DISEASE
  2. SIMVASTATIN [Concomitant]
  3. LAMOTRIGINE [Suspect]
     Indication: BIPOLAR DISORDER
     Dosage: MG, 100 MG MORNING AND 200 MG EVENING, ORAL
     Route: 048

REACTIONS (5)
  - PARKINSON'S DISEASE [None]
  - GASTRIC ULCER [None]
  - GASTRIC DISORDER [None]
  - RASH PRURITIC [None]
  - EXFOLIATIVE RASH [None]
